FAERS Safety Report 23924335 (Version 2)
Quarter: 2024Q3

REPORT INFORMATION
  Report Type: Spontaneous
  Country: RO (occurrence: RO)
  Receive Date: 20240531
  Receipt Date: 20240912
  Transmission Date: 20241016
  Serious: Yes (Hospitalization, Other)
  Sender: ACCORD
  Company Number: RO-Accord-426651

PATIENT
  Age: 32 Year
  Sex: Male

DRUGS (5)
  1. CISPLATIN [Suspect]
     Active Substance: CISPLATIN
     Indication: Mucoepidermoid carcinoma of salivary gland
     Dosage: 6 CYCLES
  2. DOCETAXEL [Suspect]
     Active Substance: DOCETAXEL\DOCETAXEL ANHYDROUS
     Indication: Mucoepidermoid carcinoma of salivary gland
     Dosage: 6 CYCLES
  3. OMEPRAZOLE [Concomitant]
     Active Substance: OMEPRAZOLE
     Indication: Gastrooesophageal reflux disease
     Dosage: 20 MG, QD
     Dates: start: 2020
  4. DOCETAXEL [Suspect]
     Active Substance: DOCETAXEL\DOCETAXEL ANHYDROUS
     Indication: Salivary gland cancer stage IV
     Dosage: 6 CYCLES
  5. CISPLATIN [Suspect]
     Active Substance: CISPLATIN
     Indication: Salivary gland cancer stage IV
     Dosage: 6 CYCLES

REACTIONS (2)
  - Acute coronary syndrome [Recovering/Resolving]
  - Off label use [Unknown]
